FAERS Safety Report 9814751 (Version 1)
Quarter: 2014Q1

REPORT INFORMATION
  Report Type: Spontaneous
  Country: US (occurrence: US)
  Receive Date: 20140113
  Receipt Date: 20140113
  Transmission Date: 20141002
  Serious: No
  Sender: FDA-Public Use
  Company Number: US-SANOFI-AVENTIS-2013SA072270

PATIENT
  Age: 51 Year
  Sex: Female

DRUGS (10)
  1. DOCETAXEL WINTHROP [Suspect]
     Indication: BREAST CANCER
     Dosage: TAKEN FROM- 3 WEEKS AGO
     Route: 065
  2. DOCETAXEL WINTHROP [Suspect]
     Indication: BREAST CANCER
     Dosage: TAKEN FROM- 3 WEEKS AGO
     Route: 065
  3. DOCETAXEL WINTHROP [Suspect]
     Indication: BREAST CANCER
     Dosage: TAKEN FROM- 3 WEEKS AGO
     Route: 065
  4. DOCETAXEL WINTHROP [Suspect]
     Indication: BREAST CANCER
     Route: 065
     Dates: start: 20130709, end: 20130709
  5. DOCETAXEL WINTHROP [Suspect]
     Indication: BREAST CANCER
     Route: 065
     Dates: start: 20130709, end: 20130709
  6. DOCETAXEL WINTHROP [Suspect]
     Indication: BREAST CANCER
     Route: 065
     Dates: start: 20130709, end: 20130709
  7. DIPHENHYDRAMINE HYDROCHLORIDE [Concomitant]
  8. EMEND [Concomitant]
  9. DEXAMETHASONE [Concomitant]
  10. ALL OTHER THERAPEUTIC PRODUCTS [Concomitant]

REACTIONS (3)
  - Feeling abnormal [Recovered/Resolved]
  - Nausea [Recovered/Resolved]
  - Dyspnoea [Recovered/Resolved]
